FAERS Safety Report 17986959 (Version 1)
Quarter: 2020Q3

REPORT INFORMATION
  Report Type: Spontaneous
  Country: US (occurrence: US)
  Receive Date: 20200707
  Receipt Date: 20200707
  Transmission Date: 20201103
  Serious: Yes (Hospitalization, Other)
  Sender: FDA-Public Use
  Company Number: US-ADVANZ PHARMA-202006006799

PATIENT

DRUGS (12)
  1. MEFENAMIC ACID. [Suspect]
     Active Substance: MEFENAMIC ACID
     Indication: PAIN
     Dosage: WITH 1 PUMP DISPENSING 1 G OUT OF A 120 G CONTAINER
     Route: 061
  2. CLONIDINE. [Suspect]
     Active Substance: CLONIDINE
     Indication: PAIN
     Dosage: 1 PUMP DISPENSING 1 G OUT OF A 120 G CONTAINER (CREAM)
     Route: 061
  3. ARIPIPRAZOLE. [Concomitant]
     Active Substance: ARIPIPRAZOLE
     Dosage: UNK
  4. KETAMINE [Suspect]
     Active Substance: KETAMINE
     Indication: PAIN
     Dosage: WITH 1 PUMP DISPENSING 1 G OUT OF A 120 G CONTAINER
     Route: 061
  5. DULOXETINE. [Concomitant]
     Active Substance: DULOXETINE
     Dosage: UNK
  6. ZOLPIDEM [Concomitant]
     Active Substance: ZOLPIDEM TARTRATE
     Dosage: UNK
  7. OXYCODONE/ACETAMINOPHEN [Concomitant]
     Active Substance: ACETAMINOPHEN\OXYCODONE HYDROCHLORIDE
     Dosage: UNK
  8. ADDERALL [Concomitant]
     Active Substance: AMPHETAMINE ASPARTATE\AMPHETAMINE SULFATE\DEXTROAMPHETAMINE SACCHARATE\DEXTROAMPHETAMINE SULFATE
     Dosage: AT LEAST TWICE IN THE 3 DAYS
  9. GABAPENTIN. [Suspect]
     Active Substance: GABAPENTIN
     Indication: PAIN
     Dosage: WITH 1 PUMP DISPENSING 1 G OUT OF A 120 G CONTAINER
     Route: 061
  10. IMIPRAMINE [Suspect]
     Active Substance: IMIPRAMINE
     Indication: PAIN
     Dosage: WITH 1 PUMP DISPENSING 1 G OUT OF A 120 G CONTAINER
  11. LIDOCAINE. [Suspect]
     Active Substance: LIDOCAINE
     Indication: PAIN
     Dosage: WITH 1 PUMP DISPENSING 1 G OUT OF A 120 G CONTAINER
     Route: 061
  12. CLONAZEPAM. [Concomitant]
     Active Substance: CLONAZEPAM
     Dosage: UNK

REACTIONS (4)
  - Toxicity to various agents [Unknown]
  - Incorrect dose administered [Unknown]
  - Subarachnoid haemorrhage [Recovering/Resolving]
  - Overdose [Unknown]
